FAERS Safety Report 9538310 (Version 4)
Quarter: 2014Q1

REPORT INFORMATION
  Report Type: Report from Study
  Country: US (occurrence: US)
  Receive Date: 20130920
  Receipt Date: 20140221
  Transmission Date: 20141002
  Serious: Yes (Life-Threatening, Other)
  Sender: FDA-Public Use
  Company Number: US-CELGENEUS-163-21880-13091373

PATIENT
  Age: 65 Year
  Sex: Male
  Weight: 87.8 kg

DRUGS (16)
  1. REVLIMID [Suspect]
     Indication: PLASMA CELL MYELOMA
     Route: 048
     Dates: start: 20110707, end: 20111115
  2. REVLIMID [Suspect]
     Dosage: 15 MILLIGRAM
     Route: 048
     Dates: start: 20120912, end: 20130715
  3. NEUPOGEN [Concomitant]
     Indication: PRODUCT USED FOR UNKNOWN INDICATION
     Dosage: 12 MICROGRAM/KILOGRAM
     Route: 065
     Dates: start: 20111214, end: 20111217
  4. LIPITOR [Concomitant]
     Indication: PRODUCT USED FOR UNKNOWN INDICATION
     Dosage: 10 MILLIGRAM
     Route: 048
  5. ASPIRIN [Concomitant]
     Indication: PRODUCT USED FOR UNKNOWN INDICATION
     Dosage: 81 MILLIGRAM
     Route: 048
     Dates: start: 20120912
  6. CITRACEL [Concomitant]
     Indication: PRODUCT USED FOR UNKNOWN INDICATION
     Dosage: 1 TABLESPOON
     Route: 065
  7. COZAAR [Concomitant]
     Indication: PRODUCT USED FOR UNKNOWN INDICATION
     Dosage: 100 MILLIGRAM
     Route: 048
  8. TOPROL XL [Concomitant]
     Indication: PRODUCT USED FOR UNKNOWN INDICATION
     Dosage: 50 MILLIGRAM
     Route: 048
  9. DOXIL [Concomitant]
     Indication: PLASMA CELL MYELOMA
     Route: 065
     Dates: start: 20110707, end: 20111115
  10. DOXIL [Concomitant]
     Route: 041
     Dates: start: 20111214, end: 20111217
  11. DOXIL [Concomitant]
     Route: 065
     Dates: start: 20130830, end: 20131011
  12. VELCADE [Concomitant]
     Indication: PLASMA CELL MYELOMA
     Route: 065
     Dates: start: 20110707, end: 20111115
  13. VELCADE [Concomitant]
     Route: 041
     Dates: start: 20111214, end: 20111217
  14. DEXAMETHASONE [Concomitant]
     Indication: PLASMA CELL MYELOMA
     Route: 065
     Dates: start: 20110707, end: 20111115
  15. CYTOXAN [Concomitant]
     Indication: PLASMA CELL MYELOMA
     Route: 065
     Dates: start: 20110707, end: 20111115
  16. CYTOXAN [Concomitant]
     Dosage: 700 MILLIGRAM/SQ. METER
     Route: 041
     Dates: start: 20111214, end: 20111217

REACTIONS (1)
  - Hodgkin^s disease nodular sclerosis stage II [Not Recovered/Not Resolved]
